FAERS Safety Report 7608361-7 (Version None)
Quarter: 2011Q3

REPORT INFORMATION
  Report Type: 
  Country: None (occurrence: None)
  Receive Date: 20110714
  Receipt Date: 20110706
  Transmission Date: 20111222
  Serious: Yes (Hospitalization)
  Sender: FDA-Public Use
  Company Number: FR-CEPHALON-2011003617

PATIENT
  Sex: Female

DRUGS (7)
  1. OLMESARTAN MEDOXOMIL [Concomitant]
  2. MODAFINIL [Suspect]
     Route: 048
  3. FUROSEMIDE [Concomitant]
  4. VALIUM [Concomitant]
  5. MODAFINIL [Suspect]
     Route: 048
     Dates: start: 20090101
  6. ENDOTELON [Concomitant]
  7. ACEBUTOLOL [Concomitant]

REACTIONS (9)
  - MALAISE [None]
  - INSOMNIA [None]
  - EYE MOVEMENT DISORDER [None]
  - HYPOMANIA [None]
  - EMOTIONAL DISORDER [None]
  - CATAPLEXY [None]
  - HYPOTONIA [None]
  - ABDOMINAL PAIN [None]
  - DISINHIBITION [None]
